FAERS Safety Report 12131143 (Version 1)
Quarter: 2016Q1

REPORT INFORMATION
  Report Type: Spontaneous
  Country: US (occurrence: None)
  Receive Date: 20160229
  Receipt Date: 20160229
  Transmission Date: 20160526
  Serious: Yes (Other)
  Sender: FDA-Public Use
  Company Number: None

PATIENT
  Age: 42 Year
  Sex: Female

DRUGS (1)
  1. CIMZIA [Suspect]
     Active Substance: CERTOLIZUMAB PEGOL
     Indication: CROHN^S DISEASE
     Dosage: 2 SYRINGES EVERY 4 WEEKS SUBCUTANEOUS
     Route: 058

REACTIONS (3)
  - Condition aggravated [None]
  - Renal impairment [None]
  - Henoch-Schonlein purpura [None]

NARRATIVE: CASE EVENT DATE: 20151231
